FAERS Safety Report 10511599 (Version 1)
Quarter: 2014Q4

REPORT INFORMATION
  Report Type: Spontaneous
  Country: GB (occurrence: GB)
  Receive Date: 20141010
  Receipt Date: 20141010
  Transmission Date: 20150528
  Serious: Yes (Hospitalization)
  Sender: FDA-Public Use
  Company Number: GB-WATSON-2014-21578

PATIENT
  Age: 69 Year
  Sex: Female

DRUGS (2)
  1. CO-AMOXICLAV [Suspect]
     Active Substance: AMOXICILLIN\CLAVULANIC ACID
     Indication: SEPSIS
     Dosage: 625 MG, TID. 500MG/125MG TABLETS
     Route: 048
  2. CIPROFLOXACIN HYDROCHLORIDE (UNKNOWN) [Suspect]
     Active Substance: CIPROFLOXACIN HYDROCHLORIDE
     Indication: SEPSIS
     Dosage: 500 MG, BID
     Route: 048

REACTIONS (2)
  - Rash maculo-papular [Recovered/Resolved]
  - Cutaneous lupus erythematosus [Unknown]

NARRATIVE: CASE EVENT DATE: 20140906
